FAERS Safety Report 7693205-8 (Version None)
Quarter: 2011Q3

REPORT INFORMATION
  Report Type: 
  Country: None (occurrence: None)
  Receive Date: 20110815
  Receipt Date: 20110801
  Transmission Date: 20111222
  Serious: Yes (Other)
  Sender: FDA-Public Use
  Company Number: JP-ACCORD-010267

PATIENT

DRUGS (2)
  1. GEMCITABINE [Suspect]
     Indication: PANCREATIC CARCINOMA
  2. ANTINEOPLASTIC AGENTS (ANTINEOPLASTIC AGENTS) [Suspect]
     Indication: NEOPLASM MALIGNANT

REACTIONS (3)
  - GANGRENE [None]
  - CONDITION AGGRAVATED [None]
  - PERIPHERAL ISCHAEMIA [None]
